FAERS Safety Report 15931375 (Version 3)
Quarter: 2019Q1

REPORT INFORMATION
  Report Type: Spontaneous
  Country: JP (occurrence: JP)
  Receive Date: 20190207
  Receipt Date: 20190312
  Transmission Date: 20190417
  Serious: Yes (Other)
  Sender: FDA-Public Use
  Company Number: JP-ROCHE-2261791

PATIENT
  Age: 49 Year
  Sex: Male

DRUGS (2)
  1. ACETAMINOPHEN. [Concomitant]
     Active Substance: ACETAMINOPHEN
     Indication: INFLUENZA
     Route: 048
     Dates: start: 20190109
  2. XOFLUZA [Suspect]
     Active Substance: BALOXAVIR MARBOXIL
     Indication: INFLUENZA
     Route: 048
     Dates: start: 20190109, end: 20190109

REACTIONS (3)
  - Muscle spasms [Not Recovered/Not Resolved]
  - Weight decreased [Unknown]
  - Bradyphrenia [Not Recovered/Not Resolved]

NARRATIVE: CASE EVENT DATE: 20190110
